FAERS Safety Report 18899472 (Version 6)
Quarter: 2021Q2

REPORT INFORMATION
  Report Type: Report from Study
  Country: RU (occurrence: RU)
  Receive Date: 20210216
  Receipt Date: 20210519
  Transmission Date: 20210717
  Serious: Yes (Life-Threatening, Hospitalization, Other)
  Sender: FDA-Public Use
  Company Number: RU-NOVOPROD-786945

PATIENT
  Age: 10 Year
  Sex: Male
  Weight: 119 kg

DRUGS (1)
  1. SOMAPACITAN 15 MG/1.5 ML PDS290 [Suspect]
     Active Substance: SOMAPACITAN
     Indication: SMALL FOR DATES BABY
     Dosage: 5.2,MG,ONCE PER WEEK
     Route: 058
     Dates: start: 20200206, end: 20210209

REACTIONS (1)
  - Type 1 diabetes mellitus [Not Recovered/Not Resolved]

NARRATIVE: CASE EVENT DATE: 20210209
